FAERS Safety Report 4590106-9 (Version None)
Quarter: 2005Q1

REPORT INFORMATION
  Report Type: 
  Country: None (occurrence: None)
  Receive Date: 20050217
  Receipt Date: 20050209
  Transmission Date: 20050727
  Serious: Yes (Death, Hospitalization)
  Sender: FDA-Public Use
  Company Number: 200510102BNE

PATIENT
  Age: 64 Year
  Sex: Male

DRUGS (2)
  1. CIPROFLOXACIN [Suspect]
     Indication: PROSTATITIS
     Dosage: SEE IMAGE
     Dates: end: 20041110
  2. CIPROFLOXACIN [Suspect]
     Indication: PROSTATITIS
     Dosage: SEE IMAGE
     Dates: start: 20041025

REACTIONS (2)
  - HEPATIC NECROSIS [None]
  - PANCREATITIS HAEMORRHAGIC [None]
